FAERS Safety Report 10086788 (Version 2)
Quarter: 2014Q3

REPORT INFORMATION
  Report Type: Spontaneous
  Country: US (occurrence: US)
  Receive Date: 20140418
  Receipt Date: 20140710
  Transmission Date: 20150326
  Serious: Yes (Death, Hospitalization)
  Sender: FDA-Public Use
  Company Number: US-GLAXOSMITHKLINE-A1068884A

PATIENT
  Age: 79 Year
  Sex: Female
  Weight: 51.8 kg

DRUGS (38)
  1. LEFLUNOMIDE. [Concomitant]
     Active Substance: LEFLUNOMIDE
  2. DIFLUCAN [Concomitant]
     Active Substance: FLUCONAZOLE
  3. ADVAIR HFA [Suspect]
     Active Substance: FLUTICASONE PROPIONATE\SALMETEROL XINAFOATE
     Indication: CHRONIC OBSTRUCTIVE PULMONARY DISEASE
     Dosage: 1PUFF TWICE PER DAY
     Route: 055
     Dates: start: 2004, end: 2014
  4. FISH OIL CONCENTRATE [Concomitant]
  5. HYDROCHLOROTHIAZIDE. [Concomitant]
     Active Substance: HYDROCHLOROTHIAZIDE
  6. IRON [Concomitant]
     Active Substance: IRON
  7. LISINOPRIL. [Concomitant]
     Active Substance: LISINOPRIL
  8. POTASSIUM [Concomitant]
     Active Substance: POTASSIUM
  9. VITAMIN B12 [Concomitant]
     Active Substance: CYANOCOBALAMIN
  10. DUONEB [Concomitant]
     Active Substance: ALBUTEROL SULFATE\IPRATROPIUM BROMIDE
  11. MIACALCIN [Concomitant]
     Active Substance: CALCITONIN SALMON
  12. FOLIC ACID. [Concomitant]
     Active Substance: FOLIC ACID
  13. GARLIC. [Concomitant]
     Active Substance: GARLIC
  14. LEUCOVORIN CALCIUM. [Concomitant]
     Active Substance: LEUCOVORIN CALCIUM
  15. NIACIN. [Concomitant]
     Active Substance: NIACIN
  16. SPIRIVA [Concomitant]
     Active Substance: TIOTROPIUM BROMIDE MONOHYDRATE
  17. TYLENOL [Concomitant]
     Active Substance: ACETAMINOPHEN
  18. ASPIRIN. [Concomitant]
     Active Substance: ASPIRIN
  19. CYCLOBENZAPRINE [Concomitant]
     Active Substance: CYCLOBENZAPRINE
  20. DOCUSATE SODIUM. [Concomitant]
     Active Substance: DOCUSATE SODIUM
  21. METHOTREXATE SODIUM. [Concomitant]
     Active Substance: METHOTREXATE SODIUM
  22. OXYCONTIN [Concomitant]
     Active Substance: OXYCODONE HYDROCHLORIDE
  23. VITAMIN C [Concomitant]
     Active Substance: ASCORBIC ACID
  24. AMLODIPINE [Concomitant]
     Active Substance: AMLODIPINE BESYLATE
  25. PERCOCET [Concomitant]
     Active Substance: ACETAMINOPHEN\OXYCODONE HYDROCHLORIDE
  26. MORPHINE [Concomitant]
     Active Substance: MORPHINE
  27. ZOFRAN [Concomitant]
     Active Substance: ONDANSETRON HYDROCHLORIDE
  28. NEURONTIN [Concomitant]
     Active Substance: GABAPENTIN
  29. ALBUTEROL SULFATE. [Concomitant]
     Active Substance: ALBUTEROL SULFATE
  30. CLOBETASOL CREAM [Concomitant]
     Active Substance: CLOBETASOL
  31. ATIVAN [Concomitant]
     Active Substance: LORAZEPAM
  32. CALCITONIN [Concomitant]
     Active Substance: CALCITONIN
  33. OMEPRAZOLE. [Concomitant]
     Active Substance: OMEPRAZOLE
  34. CALCIUM [Concomitant]
     Active Substance: CALCIUM
  35. TRANSDERM SCOP [Concomitant]
     Active Substance: SCOPOLAMINE
  36. PRILOSEC [Concomitant]
     Active Substance: OMEPRAZOLE MAGNESIUM
  37. VITAMIN D3 [Concomitant]
     Active Substance: CHOLECALCIFEROL
  38. BACTRIM [Concomitant]
     Active Substance: SULFAMETHOXAZOLE\TRIMETHOPRIM

REACTIONS (39)
  - Investigation [Unknown]
  - Hypokalaemia [Unknown]
  - Atrial fibrillation [Unknown]
  - Blood glucose decreased [Unknown]
  - Acute respiratory failure [Unknown]
  - Diarrhoea [Not Recovered/Not Resolved]
  - Blood pressure decreased [Recovered/Resolved]
  - Infectious colitis [Not Recovered/Not Resolved]
  - Renal failure [Fatal]
  - Nephropathy [Not Recovered/Not Resolved]
  - Skin ulcer [Not Recovered/Not Resolved]
  - Blood pH decreased [Recovering/Resolving]
  - Renal failure acute [Not Recovered/Not Resolved]
  - Chronic obstructive pulmonary disease [Fatal]
  - Slow response to stimuli [Unknown]
  - Somnolence [Unknown]
  - Hypokinesia [Unknown]
  - Pyrexia [Unknown]
  - Bronchitis [Not Recovered/Not Resolved]
  - Aphagia [Unknown]
  - Carbon dioxide increased [Unknown]
  - Colitis [Not Recovered/Not Resolved]
  - Central venous catheter removal [Not Recovered/Not Resolved]
  - Refusal of treatment by patient [Not Recovered/Not Resolved]
  - Wound [Recovered/Resolved]
  - Wound infection staphylococcal [Not Recovered/Not Resolved]
  - Blood potassium increased [Unknown]
  - Renal failure acute [Recovered/Resolved]
  - Pulmonary function test decreased [Fatal]
  - Hypomagnesaemia [Unknown]
  - Mental impairment [Unknown]
  - Cardioversion [Unknown]
  - Leukocytosis [Unknown]
  - Rhabdomyolysis [Unknown]
  - Hospice care [Unknown]
  - Fall [Unknown]
  - Constipation [Recovered/Resolved]
  - Blood lactic acid increased [Recovered/Resolved]
  - Sepsis [Unknown]

NARRATIVE: CASE EVENT DATE: 20140302
